FAERS Safety Report 9309876 (Version 1)
Quarter: 2013Q2

REPORT INFORMATION
  Report Type: Report from Study
  Country: CA (occurrence: CA)
  Receive Date: 20130526
  Receipt Date: 20130526
  Transmission Date: 20140414
  Serious: Yes (Hospitalization)
  Sender: FDA-Public Use
  Company Number: CA-US-EMD SERONO, INC.-7212018

PATIENT
  Age: 54 Year
  Sex: Female

DRUGS (3)
  1. REBIF [Suspect]
     Indication: MULTIPLE SCLEROSIS
     Route: 058
     Dates: start: 20100104, end: 20100610
  2. REBIF [Suspect]
     Route: 058
     Dates: start: 20100727, end: 20110719
  3. REBIF [Suspect]
     Route: 058
     Dates: start: 20120724

REACTIONS (3)
  - Foot fracture [Recovering/Resolving]
  - Osteoporosis [Unknown]
  - Osteopenia [Unknown]
